FAERS Safety Report 11569851 (Version 1)
Quarter: 2015Q3

REPORT INFORMATION
  Report Type: Spontaneous
  Country: US (occurrence: None)
  Receive Date: 20150928
  Receipt Date: 20150928
  Transmission Date: 20151125
  Serious: Yes (Other)
  Sender: FDA-Public Use
  Company Number: None

PATIENT
  Age: 57 Year
  Sex: Female

DRUGS (1)
  1. CELECOXIB. [Suspect]
     Active Substance: CELECOXIB
     Indication: INFLAMMATION
     Dosage: 1
     Route: 048
     Dates: start: 20150920, end: 20150921

REACTIONS (2)
  - Crying [None]
  - Rash papular [None]

NARRATIVE: CASE EVENT DATE: 20150920
